FAERS Safety Report 21879631 (Version 2)
Quarter: 2023Q1

REPORT INFORMATION
  Report Type: Report from Study
  Country: ES (occurrence: None)
  Receive Date: 20230118
  Receipt Date: 20230314
  Transmission Date: 20230417
  Serious: Yes (Hospitalization)
  Sender: FDA-Public Use
  Company Number: ES-Eisai Medical Research-EC-2022-127165

PATIENT
  Age: 60 Year
  Sex: Male
  Weight: 68 kg

DRUGS (7)
  1. LENVATINIB [Suspect]
     Active Substance: LENVATINIB
     Indication: Renal cell carcinoma
     Dosage: STARTING DOSE 20 MILLIGRAM, FLUCTUATED DOSAGE
     Route: 048
     Dates: start: 20220217, end: 20221018
  2. QUAVONLIMAB [Suspect]
     Active Substance: QUAVONLIMAB
     Indication: Renal cell carcinoma
     Dosage: MK-1308A (25 MG MK-1308 AND 400 MG MK-3475)
     Route: 042
     Dates: start: 20220217, end: 20220930
  3. OMEPRAZOLE [Concomitant]
     Active Substance: OMEPRAZOLE
     Dates: start: 202201, end: 20221102
  4. ENALAPRIL [Concomitant]
     Active Substance: ENALAPRIL
     Dates: start: 20220621, end: 20221026
  5. ACETAMINOPHEN [Concomitant]
     Active Substance: ACETAMINOPHEN
     Dates: start: 202201, end: 20221025
  6. LEVOTHYROXINE SODIUM [Concomitant]
     Active Substance: LEVOTHYROXINE SODIUM
     Dates: start: 20220913, end: 20221025
  7. PEMBROLIZUMAB [Suspect]
     Active Substance: PEMBROLIZUMAB

REACTIONS (1)
  - Asthenia [Not Recovered/Not Resolved]

NARRATIVE: CASE EVENT DATE: 20221025
